FAERS Safety Report 8143260-6 (Version None)
Quarter: 2012Q1

REPORT INFORMATION
  Report Type: 
  Country: None (occurrence: None)
  Receive Date: 20120217
  Receipt Date: 20120215
  Transmission Date: 20120608
  Serious: Yes (Life-Threatening, Hospitalization)
  Sender: FDA-Public Use
  Company Number: FR-PFIZER INC-FR-WYE-G02029508

PATIENT
  Age: 26 Year
  Sex: Female

DRUGS (11)
  1. KETEK [Suspect]
     Dosage: UNK
     Route: 048
     Dates: start: 20080601
  2. NORDETTE-21 [Concomitant]
     Dosage: UNK
     Route: 048
     Dates: start: 20030101
  3. PARACETAMOL [Concomitant]
     Dosage: AS NEEDED
     Route: 048
  4. NAPHAZOLINE HCL [Suspect]
     Indication: SINUSITIS
     Dosage: UNK
     Route: 045
     Dates: start: 20080621, end: 20080101
  5. PRAZEPAM [Concomitant]
     Dosage: 10 MG, 1X/DAY
     Route: 048
     Dates: start: 20080420
  6. PREDNISOLONE [Suspect]
     Indication: SINUSITIS
     Dosage: UNK
     Route: 048
     Dates: start: 20080621, end: 20080624
  7. PNEUMOREL [Suspect]
     Indication: SINUSITIS
     Dosage: UNK
     Route: 048
     Dates: start: 20080621, end: 20080630
  8. FERROUS CARBONATE [Suspect]
     Dosage: UNK
     Route: 048
     Dates: start: 20080601
  9. LEXOMIL [Concomitant]
     Dosage: 0.5 DF, AS NEEDED
     Route: 048
     Dates: start: 20050101, end: 20080101
  10. IBUPROFEN (ADVIL) [Suspect]
     Dosage: ONE SINGLE DOSE
     Route: 048
     Dates: start: 20080601, end: 20080601
  11. EUPHYTOSE [Suspect]
     Dosage: UNK
     Route: 048
     Dates: start: 20080630

REACTIONS (7)
  - TACHYCARDIA [None]
  - BLOOD PRESSURE DECREASED [None]
  - CYTOLYTIC HEPATITIS [None]
  - NEUTROPENIA [None]
  - INFLAMMATION [None]
  - HAEMORRHAGE [None]
  - STEVENS-JOHNSON SYNDROME [None]
